FAERS Safety Report 8536030-8 (Version None)
Quarter: 2012Q3

REPORT INFORMATION
  Report Type: 
  Country: None (occurrence: None)
  Receive Date: 20120725
  Receipt Date: 20120719
  Transmission Date: 20120928
  Serious: Yes (Other)
  Sender: FDA-Public Use
  Company Number: CA-NOVOPROD-356339

PATIENT
  Age: 69 Year
  Sex: Female
  Weight: 132 kg

DRUGS (8)
  1. VICTOZA [Suspect]
     Dosage: 1.2 MG, QD
     Route: 058
  2. ALDACTONE [Concomitant]
  3. ASPIRIN [Concomitant]
  4. LOSARTAN POTASSIUM [Concomitant]
  5. INSULIN [Concomitant]
  6. METFORMIN HYDROCHLORIDE [Concomitant]
  7. VICTOZA [Suspect]
     Indication: PRODUCT USED FOR UNKNOWN INDICATION
     Dosage: 0.6 MG, QD
     Route: 058
  8. METOPROLOL SUCCINATE [Concomitant]

REACTIONS (4)
  - DIARRHOEA [None]
  - HYPONATRAEMIA [None]
  - NAUSEA [None]
  - VOMITING [None]
